FAERS Safety Report 8728101 (Version 2)
Quarter: 2013Q3

REPORT INFORMATION
  Report Type: Spontaneous
  Country: US (occurrence: US)
  Receive Date: 20120817
  Receipt Date: 20130905
  Transmission Date: 20140515
  Serious: No
  Sender: FDA-Public Use
  Company Number: US-BIOGENIDEC-2012BI030137

PATIENT
  Age: 41 Year
  Sex: Female

DRUGS (2)
  1. TYSABRI [Suspect]
     Indication: MULTIPLE SCLEROSIS
     Route: 042
     Dates: start: 20080910
  2. TYSABRI [Suspect]
     Indication: MULTIPLE SCLEROSIS
     Route: 042

REACTIONS (8)
  - Confusional state [Unknown]
  - Feeling abnormal [Unknown]
  - Sensation of heaviness [Unknown]
  - Gait disturbance [Unknown]
  - Band sensation [Recovered/Resolved]
  - Productive cough [Recovered/Resolved]
  - Arthralgia [Recovered/Resolved]
  - Sluggishness [Unknown]
